FAERS Safety Report 9712514 (Version 1)
Quarter: 2013Q4

REPORT INFORMATION
  Report Type: Spontaneous
  Country: US (occurrence: US)
  Receive Date: 20131126
  Receipt Date: 20131126
  Transmission Date: 20140711
  Serious: No
  Sender: FDA-Public Use
  Company Number: US-BRISTOL-MYERS SQUIBB COMPANY-19196278

PATIENT
  Age: 57 Year
  Sex: Female
  Weight: 151.92 kg

DRUGS (3)
  1. BYDUREON [Suspect]
     Indication: TYPE 2 DIABETES MELLITUS
     Dosage: TOTAL INJ:5
  2. APIDRA [Concomitant]
  3. LANTUS [Concomitant]

REACTIONS (1)
  - Joint injury [Unknown]
